FAERS Safety Report 12866802 (Version 10)
Quarter: 2018Q1

REPORT INFORMATION
  Report Type: Report from Study
  Country: US (occurrence: US)
  Receive Date: 20161020
  Receipt Date: 20180228
  Transmission Date: 20180508
  Serious: Yes (Hospitalization, Other)
  Sender: FDA-Public Use
  Company Number: US-ACTELION-A-US2016-130848

PATIENT
  Age: 69 Year
  Sex: Female
  Weight: 42.63 kg

DRUGS (6)
  1. ADCIRCA [Concomitant]
     Active Substance: TADALAFIL
  2. IRON [Concomitant]
     Active Substance: IRON
  3. VELETRI [Suspect]
     Active Substance: EPOPROSTENOL
     Dosage: 19 NG/KG, PER MIN
     Route: 042
     Dates: start: 20141223
  4. VELETRI [Suspect]
     Active Substance: EPOPROSTENOL
     Dosage: 18 NG/KG, PER MIN
     Route: 042
  5. VELETRI [Suspect]
     Active Substance: EPOPROSTENOL
     Indication: PULMONARY HYPERTENSION
     Dosage: 20 NG/KG, PER MIN
     Route: 042
  6. LETAIRIS [Suspect]
     Active Substance: AMBRISENTAN
     Indication: PRODUCT USED FOR UNKNOWN INDICATION
     Dosage: 10 MG, QD
     Route: 065
     Dates: start: 20120618

REACTIONS (21)
  - Catheter site discolouration [Unknown]
  - Transfusion [Unknown]
  - Condition aggravated [Unknown]
  - Diarrhoea [Unknown]
  - Haemorrhoidal haemorrhage [Unknown]
  - Catheter site discharge [Unknown]
  - Dyspnoea [Unknown]
  - Dyspnoea exertional [Unknown]
  - Syncope [Unknown]
  - Malaise [Unknown]
  - Oxygen saturation decreased [Unknown]
  - Cardiac flutter [Unknown]
  - Chromaturia [Unknown]
  - Blood urine present [Unknown]
  - Haemorrhage [Unknown]
  - Abdominal pain [Unknown]
  - Chills [Unknown]
  - Pulmonary arterial hypertension [Unknown]
  - Oxygen therapy [Unknown]
  - Device infusion issue [Unknown]
  - Incorrect dose administered by device [Unknown]

NARRATIVE: CASE EVENT DATE: 20160826
